FAERS Safety Report 7314404-0 (Version None)
Quarter: 2011Q1

REPORT INFORMATION
  Report Type: 
  Country: None (occurrence: None)
  Receive Date: 20110225
  Receipt Date: 20100826
  Transmission Date: 20110831
  Serious: No
  Sender: FDA-Public Use
  Company Number: US-MYLANLABS-2010S1014727

PATIENT
  Age: 15 Year
  Sex: Male
  Weight: 58.97 kg

DRUGS (4)
  1. AMNESTEEM [Suspect]
     Indication: ACNE
  2. AMNESTEEM [Suspect]
  3. CLARAVIS [Suspect]
     Indication: ACNE
  4. AMNESTEEM [Suspect]

REACTIONS (2)
  - DISCOMFORT [None]
  - PARONYCHIA [None]
